FAERS Safety Report 20034606 (Version 1)
Quarter: 2021Q4

REPORT INFORMATION
  Report Type: Other
  Country: AU (occurrence: AU)
  Receive Date: 20211104
  Receipt Date: 20211104
  Transmission Date: 20220303
  Serious: Yes (Other)
  Sender: FDA-Public Use
  Company Number: AU-COLLEGIUM PHARMACEUTICAL, INC.-2021CGM01153

PATIENT
  Age: 37 Year
  Sex: Male

DRUGS (6)
  1. TAPENTADOL [Suspect]
     Active Substance: TAPENTADOL
     Indication: Pain
     Dosage: 50 MG, 2X/DAY
     Dates: start: 20180422, end: 20180423
  2. TAPENTADOL [Suspect]
     Active Substance: TAPENTADOL
     Indication: Pain
     Dosage: 100 MG, 1X/DAY
     Dates: start: 20180422, end: 20180422
  3. TAPENTADOL [Suspect]
     Active Substance: TAPENTADOL
     Dosage: 150 MG, 1X/DAY
     Dates: start: 20180423, end: 20180423
  4. TAPENTADOL [Suspect]
     Active Substance: TAPENTADOL
     Dosage: 50 MG, 1X/DAY
     Dates: start: 20180424, end: 20180424
  5. VENLAFAXINE [Concomitant]
     Active Substance: VENLAFAXINE HYDROCHLORIDE
  6. NALOXONE HYDROCHLORIDE\OXYCODONE HYDROCHLORIDE [Concomitant]
     Active Substance: NALOXONE HYDROCHLORIDE\OXYCODONE HYDROCHLORIDE

REACTIONS (3)
  - Generalised tonic-clonic seizure [Recovered/Resolved]
  - Myoclonus [Unknown]
  - Tremor [Unknown]
